FAERS Safety Report 14687497 (Version 4)
Quarter: 2018Q3

REPORT INFORMATION
  Report Type: Spontaneous
  Country: US (occurrence: US)
  Receive Date: 20180328
  Receipt Date: 20180816
  Transmission Date: 20181010
  Serious: No
  Sender: FDA-Public Use
  Company Number: US-BIOGEN-2018BI00539971

PATIENT
  Age: 70 Year
  Sex: Female

DRUGS (3)
  1. ZINBRYTA [Suspect]
     Active Substance: DACLIZUMAB
     Route: 058
     Dates: start: 20180220, end: 20180502
  2. ZINBRYTA [Suspect]
     Active Substance: DACLIZUMAB
     Indication: MULTIPLE SCLEROSIS
     Route: 058
  3. ZINBRYTA [Suspect]
     Active Substance: DACLIZUMAB
     Route: 065
     Dates: end: 201802

REACTIONS (11)
  - Injection site inflammation [Unknown]
  - Alopecia [Unknown]
  - Injection site infection [Not Recovered/Not Resolved]
  - Urticaria [Not Recovered/Not Resolved]
  - Pharyngeal oedema [Unknown]
  - Arthralgia [Not Recovered/Not Resolved]
  - Oropharyngeal pain [Unknown]
  - Lymphadenopathy [Unknown]
  - Optic neuritis [Not Recovered/Not Resolved]
  - Skin plaque [Unknown]
  - Rash [Unknown]

NARRATIVE: CASE EVENT DATE: 20180221
